FAERS Safety Report 16773839 (Version 1)
Quarter: 2019Q3

REPORT INFORMATION
  Report Type: Spontaneous
  Country: BR (occurrence: BR)
  Receive Date: 20190904
  Receipt Date: 20190904
  Transmission Date: 20191005
  Serious: Yes (Other)
  Sender: FDA-Public Use
  Company Number: BR-AMGEN-BRACT2012020515

PATIENT
  Age: 62 Year
  Sex: Female
  Weight: 86 kg

DRUGS (10)
  1. OMEPRAZOLE. [Concomitant]
     Active Substance: OMEPRAZOLE
     Dosage: UNK
  2. AMLODIPINE [Concomitant]
     Active Substance: AMLODIPINE BESYLATE
  3. HYDROCHLOROTHIAZIDE. [Concomitant]
     Active Substance: HYDROCHLOROTHIAZIDE
     Dosage: 25 MILLIGRAM, QD
  4. SIMVASTATIN. [Concomitant]
     Active Substance: SIMVASTATIN
     Dosage: 10 MILLIGRAM (AT NIGHT)
  5. AMLODIPINE [Concomitant]
     Active Substance: AMLODIPINE BESYLATE
     Dosage: UNK
  6. PURAN [Concomitant]
     Active Substance: LEVOTHYROXINE SODIUM
     Dosage: 150 MILLIGRAM, QD
  7. ENALAPRIL [Concomitant]
     Active Substance: ENALAPRIL
     Dosage: 10 MG IN THE MORNING AND 5 MG AT NIGHT
  8. ATORVASTATIN [Concomitant]
     Active Substance: ATORVASTATIN
     Dosage: 10 MILLIGRAM, QD
  9. ALLOPURINOL. [Concomitant]
     Active Substance: ALLOPURINOL
     Dosage: 20 MILLIGRAM, BID
  10. ENBREL [Suspect]
     Active Substance: ETANERCEPT
     Indication: RHEUMATOID ARTHRITIS
     Dosage: 50 MILLIGRAM, QWK
     Route: 058
     Dates: start: 200704

REACTIONS (6)
  - Decreased immune responsiveness [Unknown]
  - Pulmonary fibrosis [Unknown]
  - Herpes zoster [Unknown]
  - Platelet count decreased [Unknown]
  - Abdominal distension [Not Recovered/Not Resolved]
  - Injection site haematoma [Not Recovered/Not Resolved]

NARRATIVE: CASE EVENT DATE: 2011
